FAERS Safety Report 19888878 (Version 1)
Quarter: 2021Q3

REPORT INFORMATION
  Report Type: Spontaneous
  Country: FR (occurrence: FR)
  Receive Date: 20210927
  Receipt Date: 20210927
  Transmission Date: 20211014
  Serious: Yes (Other)
  Sender: FDA-Public Use
  Company Number: FR-MYLANLABS-2021M1065378

PATIENT
  Age: 29 Year
  Sex: Male
  Weight: 73 kg

DRUGS (8)
  1. PARACETAMOL MYLAN [Suspect]
     Active Substance: ACETAMINOPHEN
     Indication: GAIT DISTURBANCE
     Dosage: 1 GRAM, Q6H
     Route: 048
     Dates: start: 20210720
  2. MORPHINE [Suspect]
     Active Substance: MORPHINE
     Indication: GAIT DISTURBANCE
     Dosage: 30 MILLIGRAM
     Route: 048
     Dates: start: 20210720
  3. ONDANSETRON [Suspect]
     Active Substance: ONDANSETRON
     Indication: PRODUCT USED FOR UNKNOWN INDICATION
     Dosage: 4 MILLIGRAM, Q8H
     Route: 048
     Dates: start: 20210720, end: 20210724
  4. KETAMINE [Concomitant]
     Active Substance: KETAMINE
     Indication: PRODUCT USED FOR UNKNOWN INDICATION
     Dosage: 10 MILLIGRAM, QD
     Route: 042
     Dates: start: 20210722, end: 20210724
  5. ENOXAPARIN [Suspect]
     Active Substance: ENOXAPARIN
     Indication: PRODUCT USED FOR UNKNOWN INDICATION
     Dosage: 4000 INTERNATIONAL UNIT, QD
     Route: 058
     Dates: start: 20210720
  6. FLAMMAZINE [Suspect]
     Active Substance: SILVER SULFADIAZINE
     Indication: THERMAL BURN
     Dosage: 1 DOSAGE FORM, QD
     Route: 003
     Dates: start: 20210720, end: 20210728
  7. PARAFFIN, LIQUID [Concomitant]
     Active Substance: MINERAL OIL
     Indication: PRODUCT USED FOR UNKNOWN INDICATION
     Dosage: 15 MILLILITER, QD
     Route: 048
     Dates: start: 20210724
  8. MOVICOL [Concomitant]
     Active Substance: POLYETHYLENE GLYCOL 3350\POTASSIUM CHLORIDE\SODIUM BICARBONATE\SODIUM CHLORIDE
     Indication: PRODUCT USED FOR UNKNOWN INDICATION
     Dosage: 2 DOSAGE FORM, QD
     Route: 048
     Dates: start: 20210722

REACTIONS (1)
  - Mixed liver injury [Not Recovered/Not Resolved]

NARRATIVE: CASE EVENT DATE: 20210720
